FAERS Safety Report 16669413 (Version 1)
Quarter: 2019Q3

REPORT INFORMATION
  Report Type: Report from Study
  Country: DE (occurrence: DE)
  Receive Date: 20190805
  Receipt Date: 20190805
  Transmission Date: 20191004
  Serious: Yes (Hospitalization)
  Sender: FDA-Public Use
  Company Number: DE-MYLANLABS-ROCHE-358718

PATIENT
  Sex: Female
  Weight: 82 kg

DRUGS (6)
  1. TORASEMIDE [Suspect]
     Active Substance: TORSEMIDE
     Dosage: STRENGTH AND FORMULATION UNKNOWN.
     Route: 048
     Dates: start: 20031031
  2. RAMIPRIL. [Suspect]
     Active Substance: RAMIPRIL
     Indication: HYPERTENSION
     Dosage: 5 MILLIGRAM, QD
     Route: 048
     Dates: start: 2003
  3. XIPAMIDE [Suspect]
     Active Substance: XIPAMIDE
     Indication: HYPERTENSION
     Dosage: 10 MILLIGRAM, QD
     Route: 048
     Dates: start: 200308, end: 20031030
  4. TORASEMIDE [Suspect]
     Active Substance: TORSEMIDE
     Indication: HYPERTENSION
     Dosage: STRENGTH 10MG FORMULATION TABLET.
     Route: 048
     Dates: start: 200308, end: 20031030
  5. TORASEMIDE [Suspect]
     Active Substance: TORSEMIDE
     Dosage: STRENGTH 10MG FORMULATION TABLET.
     Route: 048
     Dates: start: 200308, end: 20031030
  6. BERLTHYROX [Concomitant]
     Active Substance: LEVOTHYROXINE SODIUM
     Indication: HYPOTHYROIDISM
     Dosage: 50 MG, QD
     Route: 048
     Dates: start: 2000

REACTIONS (3)
  - Hyperhidrosis [Recovered/Resolved]
  - Dizziness [Recovered/Resolved]
  - Hypotension [Recovered/Resolved]

NARRATIVE: CASE EVENT DATE: 20031030
